FAERS Safety Report 7297137-9 (Version None)
Quarter: 2011Q1

REPORT INFORMATION
  Report Type: 
  Country: None (occurrence: None)
  Receive Date: 20110216
  Receipt Date: 20110209
  Transmission Date: 20110831
  Serious: Yes (Other)
  Sender: FDA-Public Use
  Company Number: US-PFIZER INC-2011032800

PATIENT
  Sex: Female

DRUGS (2)
  1. OXYCODONE [Concomitant]
     Indication: PAIN
     Dosage: UNK
  2. GEODON [Suspect]
     Dosage: UNK

REACTIONS (2)
  - SOMNOLENCE [None]
  - HYPOTENSION [None]
